FAERS Safety Report 9686621 (Version 1)
Quarter: 2013Q4

REPORT INFORMATION
  Report Type: Spontaneous
  Country: BR (occurrence: BR)
  Receive Date: 20131113
  Receipt Date: 20131113
  Transmission Date: 20140711
  Serious: Yes (Hospitalization, Other)
  Sender: FDA-Public Use
  Company Number: BR-ELI_LILLY_AND_COMPANY-BR201311001223

PATIENT
  Sex: Male

DRUGS (10)
  1. HUMULIN N [Suspect]
     Indication: TYPE 2 DIABETES MELLITUS
     Dosage: 35 IU, EACH MORNING
     Route: 058
  2. HUMULIN N [Suspect]
     Dosage: 25 IU, EACH EVENING
     Route: 058
  3. HUMULIN R [Suspect]
     Indication: TYPE 2 DIABETES MELLITUS
     Dosage: 5 IU, BID
     Route: 058
  4. METFORMIN [Concomitant]
     Indication: DIABETES MELLITUS
     Dosage: 850 MG, TID
     Route: 065
  5. GLIBENCLAMIDE [Concomitant]
     Indication: DIABETES MELLITUS
     Dosage: UNK, UNKNOWN
     Route: 065
  6. ENALAPRIL MALEATE [Concomitant]
     Indication: HYPERTENSION
     Dosage: 10 MG, BID
     Route: 065
  7. AAS [Concomitant]
     Indication: ANTIPLATELET THERAPY
     Dosage: 1 DF, EACH MORNING
     Route: 065
  8. SIMVASTATIN [Concomitant]
     Indication: BLOOD CHOLESTEROL
     Dosage: 20 MG, EACH EVENING
     Route: 065
  9. LIPANON [Concomitant]
     Indication: BLOOD TRIGLYCERIDES
     Dosage: 250 MG, UNKNOWN
     Route: 065
  10. OMEPRAZOLE [Concomitant]
     Indication: GASTRITIS
     Dosage: 2 DF, PRN
     Route: 065

REACTIONS (12)
  - Diverticulitis [Recovered/Resolved]
  - Abdominal pain [Recovered/Resolved]
  - Gastrointestinal hypomotility [Recovered/Resolved]
  - Pneumonia [Unknown]
  - Blood glucose increased [Unknown]
  - Diabetes mellitus inadequate control [Unknown]
  - Intentional drug misuse [Unknown]
  - Sinusitis [Unknown]
  - Nasal congestion [Unknown]
  - Arthralgia [Unknown]
  - Musculoskeletal pain [Unknown]
  - Glycosylated haemoglobin increased [Unknown]
